FAERS Safety Report 15954155 (Version 1)
Quarter: 2019Q1

REPORT INFORMATION
  Report Type: Report from Study
  Country: US (occurrence: US)
  Receive Date: 20190212
  Receipt Date: 20190212
  Transmission Date: 20190417
  Serious: Yes (Hospitalization)
  Sender: FDA-Public Use
  Company Number: US-ACTELION-A-US2017-161564

PATIENT
  Age: 63 Year
  Sex: Male
  Weight: 130.61 kg

DRUGS (4)
  1. OPSUMIT [Suspect]
     Active Substance: MACITENTAN
     Indication: PULMONARY ARTERIAL HYPERTENSION
     Dosage: 10 MG, QD
     Route: 048
     Dates: start: 20171016
  2. VITAMIN B12 [Concomitant]
     Active Substance: CYANOCOBALAMIN
     Dosage: UNK
  3. FOLIC ACID. [Concomitant]
     Active Substance: FOLIC ACID
     Dosage: 5 MG, QD
  4. TADALAFIL. [Concomitant]
     Active Substance: TADALAFIL

REACTIONS (7)
  - Pulmonary arterial hypertension [Unknown]
  - Rib fracture [Unknown]
  - Red blood cell count increased [Not Recovered/Not Resolved]
  - White blood cell count increased [Not Recovered/Not Resolved]
  - Dyspnoea [Unknown]
  - Cough [Unknown]
  - Insomnia [Unknown]

NARRATIVE: CASE EVENT DATE: 20171017
